FAERS Safety Report 9834808 (Version 1)
Quarter: 2014Q1

REPORT INFORMATION
  Report Type: Spontaneous
  Country: US (occurrence: US)
  Receive Date: 20140122
  Receipt Date: 20140122
  Transmission Date: 20141002
  Serious: Yes (Other)
  Sender: FDA-Public Use
  Company Number: US-PFIZER INC-2014017415

PATIENT
  Age: 76 Year
  Sex: Female
  Weight: 53.27 kg

DRUGS (21)
  1. DILANTIN-125 [Suspect]
     Indication: CONVULSION
     Dosage: 100 MG, 3X/DAY
  2. DILANTIN-125 [Suspect]
     Indication: EPILEPSY
  3. PROTONIX [Suspect]
     Indication: GASTROOESOPHAGEAL REFLUX DISEASE
     Dosage: 40 MG, 2X/DAY
  4. PREMARIN [Suspect]
     Indication: VAGINAL DISORDER
     Dosage: 30 G, AS NEEDED
     Route: 067
  5. DIAZEPAM [Concomitant]
     Indication: ANXIETY
     Dosage: 0.05 MG 1/2, 4X/DAY
  6. SUCRALFATE [Concomitant]
     Indication: POLYP
     Dosage: 1 MG, 2X/DAY
  7. LASIX [Concomitant]
     Indication: FLUID RETENTION
     Dosage: 40 MG, 1X/DAY
  8. LASIX [Concomitant]
     Indication: BLOOD PRESSURE ABNORMAL
  9. SYNTHROID [Concomitant]
     Indication: THYROID HORMONE REPLACEMENT THERAPY
     Dosage: 0.125 MG, 1X/DAY
  10. LORATADINE [Concomitant]
     Indication: DERMATITIS ALLERGIC
     Dosage: 10 MG, 2X/DAY
  11. K-DUR [Concomitant]
     Indication: ELECTROLYTE SUBSTITUTION THERAPY
     Dosage: 20 MEQ, 1X/DAY
  12. VAGIFEM [Concomitant]
     Dosage: 25 MG, 1X A DAY, AS NEEDED
     Route: 067
  13. METOPROLOL [Concomitant]
     Indication: BLOOD PRESSURE ABNORMAL
     Dosage: 100 MG, 1X/DAY
  14. DESIPRAMINE [Concomitant]
     Indication: SLEEP DISORDER
     Dosage: 25 MG, 1X/DAY (AT 10:00 PM)
  15. ALBUTEROL [Concomitant]
     Indication: EMPHYSEMA
     Dosage: 0.05 %, AS NEEDED
  16. BUDESONIDE [Concomitant]
     Dosage: 0.05 MG, UNK
  17. BENZONATATE [Concomitant]
     Indication: COUGH
     Dosage: 100 MG, AS NEEDED UP TO 3XA DAY
  18. BENZONATATE [Concomitant]
     Indication: PULMONARY CONGESTION
  19. NASALCROM [Concomitant]
     Indication: NASAL CONGESTION
     Dosage: 2 DF, AS NEEDED
  20. WOMEN^S CALCIUM [Concomitant]
     Dosage: 600 MG, 1X/DAY
  21. VITAMIN C [Concomitant]
     Dosage: 500 MG, 2X/DAY

REACTIONS (4)
  - Abasia [Unknown]
  - Peripheral arterial occlusive disease [Unknown]
  - Pain [Unknown]
  - Back disorder [Unknown]
